FAERS Safety Report 7745140-4 (Version None)
Quarter: 2011Q3

REPORT INFORMATION
  Report Type: 
  Country: None (occurrence: None)
  Receive Date: 20110913
  Receipt Date: 20110902
  Transmission Date: 20111222
  Serious: Yes (Hospitalization)
  Sender: FDA-Public Use
  Company Number: CA-SHIRE-ALL1-2011-03291

PATIENT
  Sex: Male
  Weight: 77 kg

DRUGS (1)
  1. REPLAGAL [Suspect]
     Indication: FABRY'S DISEASE
     Dosage: 14 MG, 1X/2WKS (14 OR 17.5 MG)
     Route: 041
     Dates: start: 20090409

REACTIONS (1)
  - CEREBROVASCULAR ACCIDENT [None]
